FAERS Safety Report 9798881 (Version 2)
Quarter: 2014Q1

REPORT INFORMATION
  Report Type: Spontaneous
  Country: US (occurrence: US)
  Receive Date: 20140106
  Receipt Date: 20140106
  Transmission Date: 20141002
  Serious: No
  Sender: FDA-Public Use
  Company Number: US-GILEAD-2010-0033460

PATIENT
  Age: 64 Year
  Sex: Female

DRUGS (10)
  1. LETAIRIS [Suspect]
     Indication: PULMONARY ARTERIAL HYPERTENSION
     Route: 048
     Dates: start: 20091009, end: 20100110
  2. REVATIO [Concomitant]
  3. WARFARIN [Concomitant]
  4. METOPROLOL [Concomitant]
  5. FUROSEMIDE [Concomitant]
  6. ENALAPRIL [Concomitant]
  7. PEPCID [Concomitant]
  8. SIMVASTATIN [Concomitant]
  9. TRAZODONE [Concomitant]
  10. POTASSIUM [Concomitant]

REACTIONS (3)
  - Blood pressure decreased [Recovered/Resolved]
  - Oxygen saturation decreased [Unknown]
  - Dyspnoea [Unknown]
